FAERS Safety Report 7098143-X (Version None)
Quarter: 2010Q4

REPORT INFORMATION
  Report Type: 
  Country: None (occurrence: None)
  Receive Date: 20101112
  Receipt Date: 20100122
  Transmission Date: 20110411
  Serious: No
  Sender: FDA-Public Use
  Company Number: US-KINGPHARMUSA00001-K201000088

PATIENT

DRUGS (1)
  1. BICILLIN L-A [Suspect]
     Dosage: UNK

REACTIONS (2)
  - EXPIRED DRUG ADMINISTERED [None]
  - NO ADVERSE EVENT [None]
